FAERS Safety Report 20203412 (Version 5)
Quarter: 2022Q2

REPORT INFORMATION
  Report Type: Report from Study
  Country: GB (occurrence: GB)
  Receive Date: 20211218
  Receipt Date: 20220616
  Transmission Date: 20220721
  Serious: Yes (Hospitalization, Other)
  Sender: FDA-Public Use
  Company Number: GB-NOVARTISPH-NVSC2020GB268639

PATIENT
  Age: 83 Year
  Sex: Female

DRUGS (2)
  1. RIBOCICLIB [Suspect]
     Active Substance: RIBOCICLIB
     Indication: Breast cancer
     Dosage: 200 MG, QD (21 DAYS FOLLOWED BY A 7 DAY BREAK)
     Route: 048
     Dates: start: 20200917
  2. RIBOCICLIB [Suspect]
     Active Substance: RIBOCICLIB
     Dosage: UNK UNK, QD
     Route: 048
     Dates: start: 20200917

REACTIONS (8)
  - Back pain [Unknown]
  - Syncope [Recovered/Resolved]
  - Circulatory collapse [Unknown]
  - Sinus bradycardia [Unknown]
  - Heart rate irregular [Unknown]
  - Fracture [Unknown]
  - Hypertension [Unknown]
  - Neutrophil count decreased [Unknown]

NARRATIVE: CASE EVENT DATE: 20200930
